FAERS Safety Report 18502655 (Version 1)
Quarter: 2020Q4

REPORT INFORMATION
  Report Type: Report from Study
  Country: None (occurrence: IL)
  Receive Date: 20201113
  Receipt Date: 20201113
  Transmission Date: 20210114
  Serious: Yes (Hospitalization)
  Sender: FDA-Public Use
  Company Number: IL-ABBVIE-20P-082-3607165-00

PATIENT
  Age: 76 Year
  Sex: Female

DRUGS (3)
  1. DUODOPA [Suspect]
     Active Substance: CARBIDOPA\LEVODOPA
  2. ELTROXIN [Concomitant]
     Active Substance: LEVOTHYROXINE
     Indication: HYPOTHYROIDISM
     Dates: start: 1970
  3. DUODOPA [Suspect]
     Active Substance: CARBIDOPA\LEVODOPA
     Indication: PARKINSON^S DISEASE
     Dosage: LCIG MD 6ML, CD-1.2 ML/HR, LCIG ED 0.7 ML PER DOSE, NIGHT DOSE 0 ML/HR
     Route: 050

REACTIONS (10)
  - Sleep disorder [Unknown]
  - Incontinence [Unknown]
  - On and off phenomenon [Recovering/Resolving]
  - Abdominal abscess [Recovered/Resolved with Sequelae]
  - Peritonitis [Recovered/Resolved]
  - Memory impairment [Unknown]
  - Balance disorder [Unknown]
  - Motor dysfunction [Unknown]
  - Abnormal behaviour [Unknown]
  - Unevaluable event [Unknown]

NARRATIVE: CASE EVENT DATE: 2020
